FAERS Safety Report 9301748 (Version 1)
Quarter: 2012Q4

REPORT INFORMATION
  Report Type: Spontaneous
  Country: US (occurrence: None)
  Receive Date: 20121109
  Receipt Date: 20121109
  Transmission Date: 20130627
  Serious: Yes (Death)
  Sender: FDA-Public Use
  Company Number: 2011S1000812

PATIENT
  Age: 38 Year
  Sex: Female
  Weight: 72.7 kg

DRUGS (2)
  1. CUBICIN [Suspect]
  2. SYNERCID [Suspect]

REACTIONS (1)
  - Death [None]
